FAERS Safety Report 7239890-6 (Version None)
Quarter: 2011Q1

REPORT INFORMATION
  Report Type: 
  Country: None (occurrence: None)
  Receive Date: 20110123
  Receipt Date: 20110110
  Transmission Date: 20110831
  Serious: Yes (Other)
  Sender: FDA-Public Use
  Company Number: US-BAYER-2011-003467

PATIENT
  Sex: Male
  Weight: 102 kg

DRUGS (1)
  1. ALKA-SELTZER PLUS COLD FORMULA ORANGE ZEST [Suspect]

REACTIONS (3)
  - EPISTAXIS [None]
  - HAEMATEMESIS [None]
  - BLOOD PRESSURE INCREASED [None]
